FAERS Safety Report 5068315-4 (Version None)
Quarter: 2006Q3

REPORT INFORMATION
  Report Type: 
  Country: None (occurrence: None)
  Receive Date: 20060802
  Receipt Date: 20050729
  Transmission Date: 20061208
  Serious: No
  Sender: FDA-Public Use
  Company Number: US-BRISTOL-MYERS SQUIBB COMPANY-13057237

PATIENT
  Age: 85 Year
  Sex: Female
  Weight: 82 kg

DRUGS (10)
  1. COUMADIN [Suspect]
     Indication: AORTIC VALVE REPLACEMENT
     Dosage: CURRENT DOSAGE EVERY THREE DAYS: DAY 1 = 12.5 MG, DAY 2 = 12.5 MG, DAY 3 = 11.75 MG
     Dates: start: 19920101
  2. LIPITOR [Concomitant]
  3. NEURONTIN [Concomitant]
  4. LASIX [Concomitant]
  5. DITROPAN [Concomitant]
  6. MULTI-VITAMIN [Concomitant]
  7. ASCORBIC ACID [Concomitant]
  8. VITAMIN D [Concomitant]
  9. VITAMIN B COMPLEX CAP [Concomitant]
  10. VITAMINS [Concomitant]

REACTIONS (1)
  - INTERNATIONAL NORMALISED RATIO ABNORMAL [None]
